FAERS Safety Report 14897264 (Version 1)
Quarter: 2018Q2

REPORT INFORMATION
  Report Type: Spontaneous
  Country: US (occurrence: US)
  Receive Date: 20180515
  Receipt Date: 20180515
  Transmission Date: 20180711
  Serious: No
  Sender: FDA-Public Use
  Company Number: US-GLAXOSMITHKLINE-US2018082792

PATIENT
  Sex: Female

DRUGS (4)
  1. BENLYSTA [Suspect]
     Active Substance: BELIMUMAB
     Indication: SYSTEMIC LUPUS ERYTHEMATOSUS
     Dosage: UNK UNK, CYC
     Route: 042
     Dates: start: 2017, end: 2017
  2. BENLYSTA [Suspect]
     Active Substance: BELIMUMAB
     Indication: RHEUMATOID ARTHRITIS
  3. PREDNISONE. [Concomitant]
     Active Substance: PREDNISONE
     Dosage: 5 MG, UNK
  4. PREDNISONE. [Concomitant]
     Active Substance: PREDNISONE
     Dosage: 10 MG, UNK

REACTIONS (3)
  - Drug ineffective [Unknown]
  - Tachyphrenia [Recovered/Resolved]
  - Nightmare [Recovered/Resolved]
